FAERS Safety Report 24768837 (Version 2)
Quarter: 2025Q1

REPORT INFORMATION
  Report Type: Spontaneous
  Country: US (occurrence: US)
  Receive Date: 20241224
  Receipt Date: 20250115
  Transmission Date: 20250409
  Serious: No
  Sender: BOEHRINGER INGELHEIM
  Company Number: US-Komodo Health-a23aa000004tMdVAAU

PATIENT
  Age: 66 Year
  Sex: Female

DRUGS (1)
  1. STIOLTO RESPIMAT [Suspect]
     Active Substance: OLODATEROL HYDROCHLORIDE\TIOTROPIUM BROMIDE MONOHYDRATE
     Indication: Asthma
     Dosage: 2 PUFFS
     Dates: start: 2014

REACTIONS (4)
  - Dyspnoea [Recovered/Resolved]
  - Device malfunction [Unknown]
  - Off label use [Unknown]
  - Product dose omission issue [Unknown]
